FAERS Safety Report 10531344 (Version 5)
Quarter: 2017Q2

REPORT INFORMATION
  Report Type: Spontaneous
  Country: FR (occurrence: FR)
  Receive Date: 20141021
  Receipt Date: 20170525
  Transmission Date: 20170829
  Serious: Yes (Hospitalization, Other)
  Sender: FDA-Public Use
  Company Number: PHHY2014FR135747

PATIENT
  Age: 56 Year
  Sex: Male
  Weight: 90 kg

DRUGS (3)
  1. VOLTARENE [Suspect]
     Active Substance: DICLOFENAC SODIUM
     Dosage: 1 DF, BID
     Route: 048
     Dates: start: 20140715
  2. VOLTARENE [Suspect]
     Active Substance: DICLOFENAC SODIUM
     Indication: BONE PAIN
     Dosage: 1 DF, BID
     Route: 048
     Dates: start: 20140516, end: 20140530
  3. PARIET [Concomitant]
     Active Substance: RABEPRAZOLE SODIUM
     Indication: HERNIA HIATUS REPAIR
     Dosage: 20 MG, UNK
     Route: 048

REACTIONS (1)
  - Drug reaction with eosinophilia and systemic symptoms [Recovered/Resolved]

NARRATIVE: CASE EVENT DATE: 20140716
